FAERS Safety Report 9783693 (Version 1)
Quarter: 2013Q4

REPORT INFORMATION
  Report Type: Spontaneous
  Country: FR (occurrence: None)
  Receive Date: 20131223
  Receipt Date: 20131223
  Transmission Date: 20140711
  Serious: Yes (Hospitalization)
  Sender: FDA-Public Use
  Company Number: 1939416

PATIENT
  Age: 2 Year
  Sex: Male
  Weight: 10 kg

DRUGS (7)
  1. CARBOPLATIN [Suspect]
     Indication: NEPHROBLASTOMA
     Route: 042
     Dates: start: 20111107, end: 20111108
  2. HOLOXAN [Suspect]
     Indication: NEPHROBLASTOMA
     Route: 042
     Dates: start: 20111107, end: 20111108
  3. ACEBUTOLOL [Concomitant]
  4. ETOPOSIDE [Suspect]
     Indication: NEPHROBLASTOMA
     Route: 042
     Dates: start: 20111107, end: 20111108
  5. METOPIMAZINE [Concomitant]
  6. PARACETAMOL [Concomitant]
  7. NALBUPHINE [Concomitant]

REACTIONS (5)
  - Encephalopathy [None]
  - Grand mal convulsion [None]
  - Pyramidal tract syndrome [None]
  - Hyponatraemia [None]
  - Hypophosphataemia [None]
